FAERS Safety Report 18089729 (Version 3)
Quarter: 2020Q3

REPORT INFORMATION
  Report Type: Report from Study
  Country: TR (occurrence: TR)
  Receive Date: 20200729
  Receipt Date: 20200826
  Transmission Date: 20201103
  Serious: Yes (Hospitalization)
  Sender: FDA-Public Use
  Company Number: TR-REGENERON PHARMACEUTICALS, INC.-2020-48932

PATIENT

DRUGS (18)
  1. FUROMID                            /00032601/ [Concomitant]
     Indication: PLEURAL EFFUSION
     Dosage: 20 MG, AS NECESSARY
     Route: 042
     Dates: start: 20200601, end: 20200609
  2. DESEFIN [Concomitant]
     Active Substance: CEFTRIAXONE SODIUM
     Indication: PLEURAL EFFUSION
     Dosage: 1 G, BID
     Route: 042
     Dates: start: 20200602, end: 20200609
  3. LEVETIRACETAM. [Concomitant]
     Active Substance: LEVETIRACETAM
     Indication: SEIZURE
     Dosage: 150 MG, Q6H
     Route: 042
     Dates: start: 20200609, end: 20200609
  4. LAROXYL [Concomitant]
     Active Substance: AMITRIPTYLINE HYDROCHLORIDE
     Indication: ANXIETY
     Dosage: 10 MG, QD
     Route: 048
     Dates: start: 20200601, end: 20200609
  5. PROGAS [Concomitant]
     Indication: PROPHYLAXIS
     Dosage: 40 MG, QD
     Route: 042
     Dates: start: 20200602, end: 20200609
  6. CEMIPLIMAB [Suspect]
     Active Substance: CEMIPLIMAB
     Indication: LUNG ADENOCARCINOMA STAGE IV
     Dosage: 350 MG, Q3W
     Route: 042
     Dates: start: 20200205
  7. PACLITAXEL. [Suspect]
     Active Substance: PACLITAXEL
     Indication: LUNG ADENOCARCINOMA STAGE IV
     Dosage: 200 MG/M2, Q3W
     Route: 042
     Dates: start: 20190114, end: 20190318
  8. CORTAIR [Concomitant]
     Indication: PLEURAL EFFUSION
     Dosage: 0.25 MG, BID
     Route: 055
     Dates: start: 20200603, end: 20200609
  9. DIKLORON [Concomitant]
     Active Substance: DICLOFENAC SODIUM
     Indication: MUSCULOSKELETAL PAIN
     Dosage: 11.6 MG, QD
     Route: 061
     Dates: start: 20200608, end: 20200608
  10. GERALGINE K [Concomitant]
     Active Substance: ACETAMINOPHEN\CAFFEINE\CODEINE PHOSPHATE
     Indication: MUSCULOSKELETAL PAIN
     Dosage: 500+30+10 MG, TID
     Route: 048
     Dates: start: 20200601, end: 20200609
  11. KALINOR                            /01478101/ [Concomitant]
     Active Substance: POTASSIUM BICARBONATE\POTASSIUM CITRATE
     Indication: PROPHYLAXIS
     Dosage: 2.17+2 G, BID
     Route: 048
     Dates: start: 20200601, end: 20200607
  12. KALINOR                            /01478101/ [Concomitant]
     Active Substance: POTASSIUM BICARBONATE\POTASSIUM CITRATE
     Dosage: 2.17+2 G, BID
     Route: 048
     Dates: start: 20200608, end: 20200609
  13. CARBOPLATIN. [Suspect]
     Active Substance: CARBOPLATIN
     Indication: LUNG ADENOCARCINOMA STAGE IV
     Dosage: AUC OF 5 OR 6 MG/ML/MINUTE, Q3W
     Route: 042
     Dates: start: 20190114, end: 20190318
  14. CLEXANE [Concomitant]
     Active Substance: ENOXAPARIN SODIUM
     Indication: THROMBOSIS PROPHYLAXIS
     Dosage: 0.4 ML, QD
     Route: 058
     Dates: start: 20200604, end: 20200609
  15. IPRASAL [Concomitant]
     Active Substance: ALBUTEROL SULFATE\IPRATROPIUM BROMIDE
     Indication: PLEURAL EFFUSION
     Dosage: 2.5 ML, TID
     Route: 055
     Dates: start: 20200603, end: 20200609
  16. ORALAC [Concomitant]
     Indication: CONSTIPATION
     Dosage: 0.83 ML, QD
     Route: 048
     Dates: start: 20200605, end: 20200609
  17. URIKOLIZ [Concomitant]
     Active Substance: ALLOPURINOL
     Indication: PLEURAL EFFUSION
     Dosage: 150 MG, QD
     Route: 048
     Dates: start: 20200605, end: 20200609
  18. SPIRONOLACTONE AND HYDROCHLOROTHIAZIDE [Concomitant]
     Active Substance: HYDROCHLOROTHIAZIDE\SPIRONOLACTONE
     Indication: DIURETIC THERAPY
     Dosage: 50 MG, QD
     Route: 048
     Dates: start: 20200606, end: 20200609

REACTIONS (1)
  - Platelet count decreased [Recovered/Resolved]

NARRATIVE: CASE EVENT DATE: 20200706
